FAERS Safety Report 5246927-2 (Version None)
Quarter: 2007Q1

REPORT INFORMATION
  Report Type: 
  Country: None (occurrence: None)
  Receive Date: 20070226
  Receipt Date: 20070221
  Transmission Date: 20070707
  Serious: Yes (Other)
  Sender: FDA-Public Use
  Company Number: BW-BOEHRINGER INGELHEIM PHARMACEUTICALS, INC.-2006-BP-14320BP

PATIENT
  Sex: Female
  Weight: 2.77 kg

DRUGS (3)
  1. VIRAMUNE [Suspect]
     Indication: HIV INFECTION
     Route: 015
     Dates: start: 20031003
  2. EPIVIR [Suspect]
     Indication: HIV INFECTION
     Route: 015
     Dates: start: 20030919
  3. ZERIT [Suspect]
     Indication: HIV INFECTION
     Route: 015
     Dates: start: 20030919

REACTIONS (2)
  - UMBILICAL HERNIA [None]
  - VITILIGO [None]
